FAERS Safety Report 7128215-2 (Version None)
Quarter: 2010Q4

REPORT INFORMATION
  Report Type: 
  Country: None (occurrence: None)
  Receive Date: 20101130
  Receipt Date: 20101112
  Transmission Date: 20110411
  Serious: Yes (Life-Threatening, Hospitalization)
  Sender: FDA-Public Use
  Company Number: US-BRACCO-005504

PATIENT
  Sex: Male
  Weight: 61 kg

DRUGS (3)
  1. ANTI-ASTHMATICS [Concomitant]
     Indication: ASTHMA
     Route: 055
  2. MULTIHANCE [Suspect]
     Indication: MASS
     Route: 042
     Dates: start: 20101108, end: 20101108
  3. MULTIHANCE [Suspect]
     Indication: NUCLEAR MAGNETIC RESONANCE IMAGING
     Route: 042
     Dates: start: 20101108, end: 20101108

REACTIONS (2)
  - DYSPNOEA [None]
  - PHARYNGEAL OEDEMA [None]
